FAERS Safety Report 6647618-3 (Version None)
Quarter: 2010Q1

REPORT INFORMATION
  Report Type: 
  Country: None (occurrence: None)
  Receive Date: 20100323
  Receipt Date: 20100323
  Transmission Date: 20100710
  Serious: Yes (Other)
  Sender: FDA-Public Use
  Company Number: None

PATIENT
  Age: 67 Year
  Sex: Female
  Weight: 67.586 kg

DRUGS (1)
  1. OSMOPREP [Suspect]
     Indication: COLONOSCOPY
     Dosage: 32 PILLS 4 EVERY 15 MIN. PO (32 PILLS AS DIRECTED)
     Route: 048
     Dates: start: 20100308, end: 20100309

REACTIONS (5)
  - BLOOD PRESSURE INCREASED [None]
  - PALPITATIONS [None]
  - PARAESTHESIA [None]
  - PARAESTHESIA ORAL [None]
  - PRESYNCOPE [None]
